FAERS Safety Report 10554136 (Version 2)
Quarter: 2014Q4

REPORT INFORMATION
  Report Type: Spontaneous
  Country: US (occurrence: US)
  Receive Date: 20141030
  Receipt Date: 20141030
  Transmission Date: 20150529
  Serious: Yes (Hospitalization, Other)
  Sender: FDA-Public Use
  Company Number: US-GLAXOSMITHKLINE-A0729678A

PATIENT
  Age: 43 Year
  Sex: Male

DRUGS (14)
  1. GLUCOTROL [Concomitant]
     Active Substance: GLIPIZIDE
     Indication: TYPE 2 DIABETES MELLITUS
     Dates: start: 2003
  2. AVANDIA [Suspect]
     Active Substance: ROSIGLITAZONE MALEATE
     Indication: TYPE 2 DIABETES MELLITUS
     Dosage: 8 MG, QD
     Route: 048
     Dates: start: 2001, end: 20080128
  3. LOTREL [Concomitant]
     Active Substance: AMLODIPINE BESYLATE\BENAZEPRIL HYDROCHLORIDE
     Dates: end: 200703
  4. METAGLIP [Concomitant]
     Active Substance: GLIPIZIDE\METFORMIN HYDROCHLORIDE
  5. NORVASC [Concomitant]
     Active Substance: AMLODIPINE BESYLATE
     Dates: end: 200703
  6. CHANTIX [Concomitant]
     Active Substance: VARENICLINE TARTRATE
  7. TRICOR [Concomitant]
     Active Substance: FENOFIBRATE
  8. LANTUS [Concomitant]
     Active Substance: INSULIN GLARGINE
  9. CLONIDINE. [Concomitant]
     Active Substance: CLONIDINE
  10. XOPENEX [Concomitant]
     Active Substance: LEVALBUTEROL HYDROCHLORIDE
  11. PULMICORT TURBUHALER [Concomitant]
     Active Substance: BUDESONIDE
  12. GLARGINE [Concomitant]
     Indication: TYPE 2 DIABETES MELLITUS
     Dates: start: 2002
  13. ASPIRIN. [Concomitant]
     Active Substance: ASPIRIN
  14. VYTORIN [Concomitant]
     Active Substance: EZETIMIBE\SIMVASTATIN

REACTIONS (5)
  - Myocardial infarction [Unknown]
  - Hypertensive heart disease [Unknown]
  - Cardiac failure congestive [Unknown]
  - Coronary artery disease [Unknown]
  - Arteriosclerosis [Unknown]

NARRATIVE: CASE EVENT DATE: 200506
